FAERS Safety Report 8492267-8 (Version None)
Quarter: 2012Q3

REPORT INFORMATION
  Report Type: 
  Country: None (occurrence: None)
  Receive Date: 20120706
  Receipt Date: 20120629
  Transmission Date: 20120928
  Serious: Yes (Hospitalization)
  Sender: FDA-Public Use
  Company Number: BY-ROCHE-1083190

PATIENT
  Sex: Male
  Weight: 79 kg

DRUGS (3)
  1. CLADRIBINE [Suspect]
     Indication: CHRONIC LYMPHOCYTIC LEUKAEMIA
     Dosage: 0.12 MG\KG\DAY;LAST DOSE PRIOR TO SAE ON 01?MAR/2012
     Route: 042
     Dates: start: 20111012
  2. MABTHERA [Suspect]
     Indication: CHRONIC LYMPHOCYTIC LEUKAEMIA
     Dosage: LAST DOSE PRIO TO SAE ON 27/FEB/2012
     Route: 042
     Dates: start: 20111011
  3. CYCLOPHOSPHAMIDE [Suspect]
     Indication: CHRONIC LYMPHOCYTIC LEUKAEMIA
     Dosage: 250 MG\KG\DAY; LAST DOSE PRIOR TO SAE ON 01/MAR/2012
     Route: 042
     Dates: start: 20111012

REACTIONS (1)
  - ACUTE LEUKAEMIA [None]
